FAERS Safety Report 14953431 (Version 1)
Quarter: 2018Q2

REPORT INFORMATION
  Report Type: Spontaneous
  Country: DE (occurrence: DE)
  Receive Date: 20180530
  Receipt Date: 20180530
  Transmission Date: 20180711
  Serious: Yes (Death, Hospitalization, Other)
  Sender: FDA-Public Use
  Company Number: DE-JNJFOC-20180536311

PATIENT
  Age: 78 Year
  Sex: Female
  Weight: 69 kg

DRUGS (13)
  1. XARELTO [Suspect]
     Active Substance: RIVAROXABAN
     Indication: ATRIAL FIBRILLATION
     Route: 048
     Dates: start: 20170102, end: 20170127
  2. XARELTO [Suspect]
     Active Substance: RIVAROXABAN
     Indication: ATRIAL FIBRILLATION
     Route: 048
  3. ENALAPRIL MALEATE W/HYDROCHLOROTHIAZIDE [Concomitant]
     Active Substance: ENALAPRIL MALEATE\HYDROCHLOROTHIAZIDE
     Indication: HYPERTENSION
     Route: 048
     Dates: start: 200904
  4. TORASEMID [Concomitant]
     Active Substance: TORSEMIDE
     Indication: CARDIAC FAILURE
     Route: 048
  5. SANDIMMUN [Interacting]
     Active Substance: CYCLOSPORINE
     Indication: MYELODYSPLASTIC SYNDROME
     Route: 048
     Dates: start: 201009, end: 201112
  6. L-THYROXIN [Concomitant]
     Active Substance: LEVOTHYROXINE SODIUM
     Indication: HYPOTHYROIDISM
     Route: 048
     Dates: start: 201212
  7. SANDIMMUN [Interacting]
     Active Substance: CYCLOSPORINE
     Indication: MYELODYSPLASTIC SYNDROME
     Route: 048
     Dates: start: 201203, end: 20170123
  8. SANDIMMUN [Interacting]
     Active Substance: CYCLOSPORINE
     Indication: MYELODYSPLASTIC SYNDROME
     Route: 048
     Dates: start: 201009, end: 201112
  9. SANDIMMUN [Interacting]
     Active Substance: CYCLOSPORINE
     Indication: MYELODYSPLASTIC SYNDROME
     Route: 048
     Dates: start: 201203, end: 20170123
  10. APIXABAN [Concomitant]
     Active Substance: APIXABAN
     Indication: ATRIAL FIBRILLATION
     Route: 065
     Dates: start: 201612, end: 20170102
  11. METOHEXAL [Concomitant]
     Active Substance: METOPROLOL SUCCINATE
     Indication: ARRHYTHMIA
     Route: 048
     Dates: start: 201404
  12. METOHEXAL [Concomitant]
     Active Substance: METOPROLOL SUCCINATE
     Indication: HYPERTENSION
     Route: 048
     Dates: start: 201404
  13. LERCANIDIPINE [Concomitant]
     Active Substance: LERCANIDIPINE
     Indication: HYPERTENSION
     Route: 065
     Dates: start: 201609

REACTIONS (8)
  - Thrombocytopenia [Unknown]
  - Drug interaction [Unknown]
  - Dyspnoea [Unknown]
  - Leukopenia [Unknown]
  - Blood creatinine increased [Unknown]
  - Blood urea increased [Unknown]
  - General physical health deterioration [Unknown]
  - Pyrexia [Unknown]

NARRATIVE: CASE EVENT DATE: 20170112
